FAERS Safety Report 8500297-2 (Version None)
Quarter: 2012Q3

REPORT INFORMATION
  Report Type: 
  Country: None (occurrence: None)
  Receive Date: 20120710
  Receipt Date: 20120703
  Transmission Date: 20120928
  Serious: Yes (Other)
  Sender: FDA-Public Use
  Company Number: AU-AMGEN-AUSSP2012039892

PATIENT
  Age: 50 Year

DRUGS (2)
  1. EPIRUBICIN [Concomitant]
     Indication: BREAST CANCER METASTATIC
     Dosage: UNK
  2. XGEVA [Suspect]
     Indication: BREAST CANCER METASTATIC
     Dosage: UNK
     Dates: end: 20120501

REACTIONS (1)
  - HYPERCALCAEMIA [None]
